FAERS Safety Report 11540558 (Version 1)
Quarter: 2015Q3

REPORT INFORMATION
  Report Type: Spontaneous
  Country: US (occurrence: US)
  Receive Date: 20150923
  Receipt Date: 20150923
  Transmission Date: 20151125
  Serious: No
  Sender: FDA-Public Use
  Company Number: US-BEH-2015049735

PATIENT
  Sex: Female
  Weight: 94.3 kg

DRUGS (42)
  1. ACETAMINOPHEN. [Concomitant]
     Active Substance: ACETAMINOPHEN
  2. DIPHENHYDRAMINE. [Concomitant]
     Active Substance: DIPHENHYDRAMINE
  3. SODIUM CHLORIDE. [Concomitant]
     Active Substance: SODIUM CHLORIDE
  4. CHLORTHALIDONE. [Concomitant]
     Active Substance: CHLORTHALIDONE
  5. MORPHINE [Concomitant]
     Active Substance: MORPHINE
  6. METOPROLOL [Concomitant]
     Active Substance: METOPROLOL
  7. ALBUTEROL. [Concomitant]
     Active Substance: ALBUTEROL
  8. MAGNESIUM OXIDE. [Concomitant]
     Active Substance: MAGNESIUM OXIDE
  9. NITROSTAT [Concomitant]
     Active Substance: NITROGLYCERIN
  10. POTASSIUM CL [Concomitant]
     Active Substance: POTASSIUM CHLORIDE
  11. LEVOXYL [Concomitant]
     Active Substance: LEVOTHYROXINE SODIUM
  12. VITAMIN B12 [Concomitant]
     Active Substance: CYANOCOBALAMIN
  13. DOXYCYCLINE. [Concomitant]
     Active Substance: DOXYCYCLINE
  14. ADVAIR HFA [Concomitant]
     Active Substance: FLUTICASONE PROPIONATE\SALMETEROL XINAFOATE
  15. SPIRIVA [Concomitant]
     Active Substance: TIOTROPIUM BROMIDE MONOHYDRATE
  16. IBUPROFEN. [Concomitant]
     Active Substance: IBUPROFEN
  17. HUMALOG [Concomitant]
     Active Substance: INSULIN LISPRO
  18. LOSARTAN. [Concomitant]
     Active Substance: LOSARTAN
  19. TECFIDERA [Concomitant]
     Active Substance: DIMETHYL FUMARATE
  20. PRIVIGEN [Suspect]
     Active Substance: HUMAN IMMUNOGLOBULIN G
     Indication: HYPOGAMMAGLOBULINAEMIA
     Dosage: 5 G VIALS
     Route: 042
     Dates: start: 20150311
  21. ISOSORBIDE. [Concomitant]
     Active Substance: ISOSORBIDE
  22. ROCEPHIN [Concomitant]
     Active Substance: CEFTRIAXONE SODIUM
  23. PRAVASTATIN [Concomitant]
     Active Substance: PRAVASTATIN\PRAVASTATIN SODIUM
  24. PREDNISONE. [Concomitant]
     Active Substance: PREDNISONE
  25. LYRICA [Concomitant]
     Active Substance: PREGABALIN
  26. LANTUS [Concomitant]
     Active Substance: INSULIN GLARGINE
  27. MIRALAX [Concomitant]
     Active Substance: POLYETHYLENE GLYCOL 3350
  28. MYCOPHENOLATE [Concomitant]
     Active Substance: MYCOPHENOLIC ACID
  29. PRIVIGEN [Suspect]
     Active Substance: HUMAN IMMUNOGLOBULIN G
     Indication: HYPOGAMMAGLOBULINAEMIA
     Dosage: 5 G VIALS
     Route: 042
     Dates: start: 20150311
  30. EPIPEN [Concomitant]
     Active Substance: EPINEPHRINE
  31. TRAZODONE [Concomitant]
     Active Substance: TRAZODONE HYDROCHLORIDE
  32. PLAQUENIL [Concomitant]
     Active Substance: HYDROXYCHLOROQUINE SULFATE
  33. CALCIUM [Concomitant]
     Active Substance: CALCIUM
  34. PRILOSEC [Concomitant]
     Active Substance: OMEPRAZOLE MAGNESIUM
  35. PRIVIGEN [Suspect]
     Active Substance: HUMAN IMMUNOGLOBULIN G
     Indication: MULTIPLE SCLEROSIS
     Dosage: 10 G VIALS
     Route: 042
     Dates: start: 20150311
  36. FOLIC ACID. [Concomitant]
     Active Substance: FOLIC ACID
  37. FLEXERIL [Concomitant]
     Active Substance: CYCLOBENZAPRINE HYDROCHLORIDE
  38. PROAIR HFA [Concomitant]
     Active Substance: ALBUTEROL SULFATE
  39. ATELVIA [Concomitant]
     Active Substance: RISEDRONATE SODIUM
  40. AUGMENTIN [Concomitant]
     Active Substance: AMOXICILLIN\CLAVULANATE POTASSIUM
  41. VITAMIN D [Concomitant]
     Active Substance: CHOLECALCIFEROL
  42. SALAGEN [Concomitant]
     Active Substance: PILOCARPINE HYDROCHLORIDE

REACTIONS (1)
  - Urinary tract infection [Unknown]
